FAERS Safety Report 9485212 (Version 3)
Quarter: 2013Q3

REPORT INFORMATION
  Report Type: Report from Study
  Country: US (occurrence: US)
  Receive Date: 20130828
  Receipt Date: 20130903
  Transmission Date: 20140515
  Serious: Yes (Hospitalization, Other)
  Sender: FDA-Public Use
  Company Number: US-ABBOTT-13P-163-1135326-00

PATIENT
  Age: 65 Year
  Sex: Male

DRUGS (6)
  1. HUMIRA [Suspect]
     Indication: RHEUMATOID ARTHRITIS
  2. HUMIRA [Suspect]
     Indication: RHEUMATOID ARTHRITIS
  3. SYNTHROID [Concomitant]
     Indication: THYROIDECTOMY
  4. BABY ASPIRIN [Concomitant]
     Indication: PRODUCT USED FOR UNKNOWN INDICATION
  5. MSIR [Concomitant]
     Indication: PAIN
  6. AVINZA [Concomitant]
     Indication: PAIN
     Dosage: EVERY MORNING

REACTIONS (10)
  - Intervertebral disc protrusion [Recovering/Resolving]
  - Road traffic accident [Recovering/Resolving]
  - Hypoaesthesia [Recovering/Resolving]
  - Paraesthesia [Recovering/Resolving]
  - Basal cell carcinoma [Unknown]
  - Rheumatoid arthritis [Not Recovered/Not Resolved]
  - Device malfunction [Not Recovered/Not Resolved]
  - Device malfunction [Not Recovered/Not Resolved]
  - Drug dose omission [Not Recovered/Not Resolved]
  - Injection site scar [Not Recovered/Not Resolved]
